FAERS Safety Report 9433316 (Version 1)
Quarter: 2013Q3

REPORT INFORMATION
  Report Type: Spontaneous
  Country: FR (occurrence: FR)
  Receive Date: 20130731
  Receipt Date: 20130731
  Transmission Date: 20140515
  Serious: Yes (Hospitalization)
  Sender: FDA-Public Use
  Company Number: FR-BRISTOL-MYERS SQUIBB COMPANY-19142421

PATIENT
  Age: 82 Year
  Sex: Male

DRUGS (9)
  1. COUMADIN TABS 4 MG [Suspect]
     Indication: ARRHYTHMIA
     Dosage: 5MG
     Route: 048
     Dates: start: 2008
  2. FOSAVANCE [Concomitant]
     Dosage: 1DF:70
  3. TAHOR [Concomitant]
     Dosage: 1DF:40
  4. LAMICTAL [Concomitant]
     Dosage: 1DF:50
  5. POVIDONE [Concomitant]
  6. SILODOSIN [Concomitant]
  7. AVODART [Concomitant]
  8. DAFALGAN [Concomitant]
     Dosage: 1DF:500
  9. MUCOMYST [Concomitant]

REACTIONS (3)
  - Subarachnoid haemorrhage [Recovered/Resolved]
  - Subcutaneous haematoma [Recovered/Resolved]
  - Fall [Recovered/Resolved]
